APPROVED DRUG PRODUCT: SUBVENITE
Active Ingredient: LAMOTRIGINE
Strength: 10MG/ML
Dosage Form/Route: SUSPENSION;ORAL
Application: N218879 | Product #001
Applicant: OWP PHARMACEUTICALS INC
Approved: Sep 16, 2025 | RLD: Yes | RS: Yes | Type: RX

PATENTS:
Patent 11596634 | Expires: May 29, 2040
Patent 11596634 | Expires: May 29, 2040
Patent 11596634 | Expires: May 29, 2040
Patent 11612566 | Expires: May 29, 2040
Patent 11612566 | Expires: May 29, 2040
Patent 11612566 | Expires: May 29, 2040